FAERS Safety Report 22917219 (Version 5)
Quarter: 2023Q4

REPORT INFORMATION
  Report Type: Report from Study
  Country: US (occurrence: US)
  Receive Date: 20230907
  Receipt Date: 20231017
  Transmission Date: 20240109
  Serious: Yes (Hospitalization, Other)
  Sender: FDA-Public Use
  Company Number: US-JNJFOC-20230868221

PATIENT
  Age: 36 Year
  Sex: Male
  Weight: 70.5 kg

DRUGS (3)
  1. EPOPROSTENOL SODIUM [Suspect]
     Active Substance: EPOPROSTENOL SODIUM
     Indication: Pulmonary hypertension
     Route: 042
  2. OPSUMIT [Concomitant]
     Active Substance: MACITENTAN
  3. SILDENAFIL CITRATE [Concomitant]
     Active Substance: SILDENAFIL CITRATE

REACTIONS (12)
  - Pulmonary arterial hypertension [Unknown]
  - Catheterisation cardiac [Unknown]
  - Platelet count decreased [Unknown]
  - Heart rate increased [Unknown]
  - Blood glucose abnormal [Unknown]
  - Device related infection [Unknown]
  - Staphylococcal infection [Unknown]
  - Infusion site swelling [Unknown]
  - Product administration interrupted [Unknown]
  - Drug delivery system malfunction [Unknown]
  - Product dose omission issue [Unknown]
  - Central venous catheterisation [Unknown]

NARRATIVE: CASE EVENT DATE: 20230101
